FAERS Safety Report 5814021-5 (Version None)
Quarter: 2008Q3

REPORT INFORMATION
  Report Type: 
  Country: None (occurrence: None)
  Receive Date: 20080717
  Receipt Date: 20070516
  Transmission Date: 20090109
  Serious: Yes (Other)
  Sender: FDA-Public Use
  Company Number: US-PFIZER INC-2007007744

PATIENT
  Sex: Male
  Weight: 77.1 kg

DRUGS (7)
  1. CHANTIX [Suspect]
     Indication: SMOKING CESSATION THERAPY
     Route: 048
     Dates: start: 20061123, end: 20070301
  2. CHANTIX [Interacting]
     Indication: TOBACCO ABUSE
  3. VIREAD [Interacting]
     Indication: HIV INFECTION
     Route: 048
  4. ANTIVIRALS FOR SYSTEMIC USE [Interacting]
     Indication: HIV INFECTION
  5. MUCINEX [Interacting]
  6. DEPAKOTE [Concomitant]
  7. VYTORIN [Concomitant]

REACTIONS (8)
  - BLOOD CREATININE INCREASED [None]
  - COGNITIVE DISORDER [None]
  - DECREASED APPETITE [None]
  - DRUG INTERACTION [None]
  - FEELING HOT [None]
  - HYPERHIDROSIS [None]
  - INFLUENZA LIKE ILLNESS [None]
  - WEIGHT INCREASED [None]
